FAERS Safety Report 8001586-0 (Version None)
Quarter: 2011Q4

REPORT INFORMATION
  Report Type: 
  Country: None (occurrence: None)
  Receive Date: 20111222
  Receipt Date: 20111214
  Transmission Date: 20120403
  Serious: Yes (Other)
  Sender: FDA-Public Use
  Company Number: US-SHIRE-ALL1-2011-04976

PATIENT
  Sex: Male
  Weight: 10.884 kg

DRUGS (1)
  1. VYVANSE [Suspect]
     Indication: PRODUCT USED FOR UNKNOWN INDICATION
     Dosage: UNK, UNKNOWN
     Route: 065
     Dates: start: 20090101, end: 20090701

REACTIONS (3)
  - FOETAL EXPOSURE DURING PREGNANCY [None]
  - BODY HEIGHT BELOW NORMAL [None]
  - POSTMATURE BABY [None]
